FAERS Safety Report 6686870-5 (Version None)
Quarter: 2010Q2

REPORT INFORMATION
  Report Type: 
  Country: None (occurrence: None)
  Receive Date: 20100416
  Receipt Date: 20100416
  Transmission Date: 20101027
  Serious: No
  Sender: FDA-Public Use
  Company Number: None

PATIENT
  Age: 56 Year
  Sex: Male
  Weight: 113.3993 kg

DRUGS (3)
  1. MOBIC [Suspect]
     Indication: POOR PERIPHERAL CIRCULATION
     Dosage: TAKE 1 AT NIGHT EVERY DAY AND 1 AT BEDTIME 2 PILL A DAY UNTIL 3/23/2011
     Dates: start: 20100323
  2. MOBIC [Suspect]
     Indication: SWELLING
     Dosage: TAKE 1 AT NIGHT EVERY DAY AND 1 AT BEDTIME 2 PILL A DAY UNTIL 3/23/2011
     Dates: start: 20100323
  3. MOBIC [Suspect]
     Indication: VARICOSE VEIN
     Dosage: TAKE 1 AT NIGHT EVERY DAY AND 1 AT BEDTIME 2 PILL A DAY UNTIL 3/23/2011
     Dates: start: 20100323

REACTIONS (5)
  - LIBIDO DECREASED [None]
  - OEDEMA PERIPHERAL [None]
  - PAIN IN EXTREMITY [None]
  - POOR PERIPHERAL CIRCULATION [None]
  - PRURITUS [None]
